FAERS Safety Report 13770600 (Version 1)
Quarter: 2017Q3

REPORT INFORMATION
  Report Type: Spontaneous
  Country: PL (occurrence: PL)
  Receive Date: 20170719
  Receipt Date: 20170719
  Transmission Date: 20171127
  Serious: Yes (Other)
  Sender: FDA-Public Use
  Company Number: PL-BAYER-2017-133689

PATIENT
  Age: 67 Year

DRUGS (1)
  1. NEXAVAR [Suspect]
     Active Substance: SORAFENIB

REACTIONS (1)
  - Disease progression [None]
